FAERS Safety Report 5362057-3 (Version None)
Quarter: 2007Q2

REPORT INFORMATION
  Report Type: 
  Country: None (occurrence: None)
  Receive Date: 20070615
  Receipt Date: 20070615
  Transmission Date: 20071010
  Serious: Yes (Death)
  Sender: FDA-Public Use
  Company Number: None

PATIENT
  Age: 65 Year
  Sex: Female
  Weight: 80.7403 kg

DRUGS (3)
  1. OXALIPLATIN [Suspect]
     Indication: COLON CANCER
     Dosage: 482MG INTRAPERITONEAL
     Route: 033
     Dates: start: 20070529
  2. LIPITOR [Concomitant]
  3. PREMPRO [Concomitant]

REACTIONS (8)
  - ANAEMIA POSTOPERATIVE [None]
  - BACTERAEMIA [None]
  - METABOLIC ACIDOSIS [None]
  - MULTI-ORGAN FAILURE [None]
  - PROCEDURAL HYPOTENSION [None]
  - PYREXIA [None]
  - RESPIRATORY FAILURE [None]
  - TACHYCARDIA [None]
